FAERS Safety Report 4725266-X (Version None)
Quarter: 2005Q3

REPORT INFORMATION
  Report Type: 
  Country: None (occurrence: None)
  Receive Date: 20050725
  Receipt Date: 20050711
  Transmission Date: 20060218
  Serious: Yes (Other)
  Sender: FDA-Public Use
  Company Number: 2005100339

PATIENT
  Sex: Male

DRUGS (3)
  1. BENADRYL [Suspect]
     Dosage: 25 MG
     Dates: start: 19990101
  2. DIPHENHYDRAMINE HCL [Suspect]
     Indication: INSOMNIA
     Dosage: UP TO 64 TABS AT ONCE, TWICE  WEEKLY, ORAL
     Route: 048
     Dates: start: 19990101
  3. ETHANOL (ETHANOL) [Suspect]
     Dosage: ORAL
     Route: 048

REACTIONS (13)
  - CARPAL TUNNEL SYNDROME [None]
  - CEREBRAL DISORDER [None]
  - CERVICOBRACHIAL SYNDROME [None]
  - CONSTIPATION [None]
  - DRUG DEPENDENCE [None]
  - DYSKINESIA [None]
  - DYSPNOEA [None]
  - ERYTHROPSIA [None]
  - FEELING ABNORMAL [None]
  - OVERDOSE [None]
  - PAIN IN EXTREMITY [None]
  - PERIPHERAL SENSORY NEUROPATHY [None]
  - TACHYCARDIA [None]
